FAERS Safety Report 4786771-3 (Version None)
Quarter: 2005Q4

REPORT INFORMATION
  Report Type: 
  Country: None (occurrence: None)
  Receive Date: 20051004
  Receipt Date: 20050926
  Transmission Date: 20060501
  Serious: Yes (Hospitalization)
  Sender: FDA-Public Use
  Company Number: US-BRISTOL-MYERS SQUIBB COMPANY-13123450

PATIENT
  Age: 74 Year
  Sex: Female

DRUGS (8)
  1. CETUXIMAB [Suspect]
     Indication: NON-SMALL CELL LUNG CANCER
     Route: 042
     Dates: start: 20050919, end: 20050919
  2. CARBOPLATIN [Suspect]
     Indication: NON-SMALL CELL LUNG CANCER
     Route: 042
     Dates: start: 20050912, end: 20050912
  3. PACLITAXEL [Suspect]
     Indication: NON-SMALL CELL LUNG CANCER
     Route: 042
     Dates: start: 20050912, end: 20050912
  4. LISINOPRIL [Concomitant]
     Route: 048
     Dates: start: 20030401
  5. ATENOLOL [Concomitant]
     Route: 048
     Dates: start: 20030401
  6. CLOPIDOGREL BISULFATE [Concomitant]
     Route: 048
     Dates: start: 20030401
  7. GABAPENTIN [Concomitant]
     Route: 048
     Dates: start: 20030401
  8. ACYCLOVIR [Concomitant]
     Route: 048
     Dates: start: 20050111

REACTIONS (2)
  - FEBRILE NEUTROPENIA [None]
  - URINARY TRACT INFECTION [None]
